FAERS Safety Report 10417631 (Version 1)
Quarter: 2014Q2

REPORT INFORMATION
  Report Type: Spontaneous
  Country: US (occurrence: None)
  Receive Date: 20140609
  Receipt Date: 20140609
  Transmission Date: 20141212
  Serious: No
  Sender: FDA-Public Use
  Company Number: 2014TUS001365

PATIENT
  Age: 27 Year
  Sex: Female
  Weight: 50.8 kg

DRUGS (2)
  1. BRINTELLIX [Suspect]
     Indication: MAJOR DEPRESSION
     Route: 048
     Dates: start: 20140211, end: 201402
  2. BRINTELLIX [Suspect]
     Indication: DEPRESSION
     Route: 048
     Dates: start: 20140211, end: 201402

REACTIONS (6)
  - Retching [None]
  - Migraine [None]
  - Headache [None]
  - Nausea [None]
  - Dizziness [None]
  - Vomiting [None]
